FAERS Safety Report 7673027-4 (Version None)
Quarter: 2011Q3

REPORT INFORMATION
  Report Type: 
  Country: None (occurrence: None)
  Receive Date: 20110809
  Receipt Date: 20110804
  Transmission Date: 20111222
  Serious: Yes (Death)
  Sender: FDA-Public Use
  Company Number: PHHY2011GB70290

PATIENT
  Age: 56 Year
  Sex: Male
  Weight: 57 kg

DRUGS (8)
  1. ENOXAPARIN SODIUM [Concomitant]
  2. ACETAMINOPHEN [Concomitant]
  3. ATORVASTATIN [Concomitant]
  4. CITALOPRAM HYDROBROMIDE [Concomitant]
  5. ASPIRIN [Concomitant]
  6. HALOPERIDOL [Suspect]
     Indication: AGITATION
     Dosage: 0.5 MG, PRN
     Route: 048
  7. LORAZEPAM [Suspect]
     Indication: AGITATION
     Dosage: 0.5 MG, TID
     Route: 048
  8. OXYCODONE HCL [Concomitant]

REACTIONS (3)
  - NEUROLEPTIC MALIGNANT SYNDROME [None]
  - RHABDOMYOLYSIS [None]
  - DYSKINESIA [None]
